FAERS Safety Report 7441225-0 (Version None)
Quarter: 2011Q2

REPORT INFORMATION
  Report Type: 
  Country: None (occurrence: None)
  Receive Date: 20110428
  Receipt Date: 20110418
  Transmission Date: 20111010
  Serious: Yes (Hospitalization)
  Sender: FDA-Public Use
  Company Number: US-BIOGENIDEC-2011BI011406

PATIENT
  Age: 42 Year
  Sex: Female

DRUGS (2)
  1. TYSABRI [Suspect]
     Indication: MULTIPLE SCLEROSIS
     Route: 042
     Dates: start: 20100616, end: 20110314
  2. TYSABRI [Suspect]
     Route: 042
     Dates: start: 20080410, end: 20080710

REACTIONS (1)
  - MULTIPLE SCLEROSIS RELAPSE [None]
